FAERS Safety Report 9474838 (Version 4)
Quarter: 2013Q4

REPORT INFORMATION
  Report Type: Spontaneous
  Country: IT (occurrence: IT)
  Receive Date: 20130823
  Receipt Date: 20131216
  Transmission Date: 20140711
  Serious: Yes (Death, Hospitalization)
  Sender: FDA-Public Use
  Company Number: PHHY2013IT082173

PATIENT
  Age: 82 Year
  Sex: Female

DRUGS (8)
  1. TICLOPIDINE [Suspect]
     Indication: CEREBROVASCULAR ACCIDENT
     Dosage: 250 MG, QD
     Dates: start: 20100601, end: 20130622
  2. ZYPREXA [Suspect]
     Indication: BIPOLAR DISORDER
     Dosage: 10 MG, QD
     Route: 048
     Dates: start: 20130224, end: 20130622
  3. ASACOL [Suspect]
     Indication: COLITIS ULCERATIVE
     Dosage: 2400 MG, QD
     Dates: start: 20130412, end: 20130622
  4. ANTRA [Concomitant]
  5. EUTIROX [Concomitant]
  6. LOSAZID [Concomitant]
  7. SPIRIVA [Concomitant]
  8. FOLINA [Concomitant]

REACTIONS (8)
  - Endocarditis [Fatal]
  - Sepsis [Fatal]
  - Diarrhoea [Fatal]
  - Pyrexia [Fatal]
  - Cardiac enzymes increased [Fatal]
  - Electrocardiogram abnormal [Fatal]
  - Neutropenia [Recovered/Resolved]
  - Leukopenia [Recovered/Resolved]
